FAERS Safety Report 5237842-9 (Version None)
Quarter: 2007Q1

REPORT INFORMATION
  Report Type: 
  Country: None (occurrence: None)
  Receive Date: 20070214
  Receipt Date: 20070201
  Transmission Date: 20070707
  Serious: Yes (Hospitalization)
  Sender: FDA-Public Use
  Company Number: US-KINGPHARMUSA00001-K200700116

PATIENT

DRUGS (4)
  1. FLORINEF [Suspect]
     Indication: SYNCOPE VASOVAGAL
     Dosage: .2 MG, QD
     Route: 048
     Dates: start: 20060413, end: 20061223
  2. AMLODIPINE [Concomitant]
  3. PERINDOPRIL ERBUMINE [Concomitant]
  4. LIPITOR [Concomitant]

REACTIONS (8)
  - ACUTE MYOCARDIAL INFARCTION [None]
  - BLOOD CREATINE PHOSPHOKINASE INCREASED [None]
  - CHEST PAIN [None]
  - CORONARY ARTERY STENOSIS [None]
  - EJECTION FRACTION DECREASED [None]
  - ELECTROCARDIOGRAM ABNORMAL [None]
  - HYPERTENSION [None]
  - TROPONIN INCREASED [None]
